FAERS Safety Report 19881810 (Version 1)
Quarter: 2021Q3

REPORT INFORMATION
  Report Type: Spontaneous
  Country: US (occurrence: US)
  Receive Date: 20210924
  Receipt Date: 20210924
  Transmission Date: 20211014
  Serious: No
  Sender: FDA-Public Use
  Company Number: US-GILEAD-2021-0549921

PATIENT
  Age: 86 Year
  Sex: Male

DRUGS (3)
  1. VEKLURY [Suspect]
     Active Substance: REMDESIVIR
     Indication: COVID-19
     Dosage: 200 MG
     Route: 042
     Dates: start: 20210920, end: 20210921
  2. BARICITINIB. [Concomitant]
     Active Substance: BARICITINIB
  3. VEKLURY [Suspect]
     Active Substance: REMDESIVIR
     Dosage: 100 UNK
     Route: 042
     Dates: start: 20210921, end: 20210922

REACTIONS (1)
  - Transaminases increased [Unknown]

NARRATIVE: CASE EVENT DATE: 20210920
